FAERS Safety Report 23911795 (Version 1)
Quarter: 2024Q2

REPORT INFORMATION
  Report Type: Spontaneous
  Country: IT (occurrence: IT)
  Receive Date: 20240528
  Receipt Date: 20240528
  Transmission Date: 20240716
  Serious: Yes (Hospitalization)
  Sender: FDA-Public Use
  Company Number: None

PATIENT
  Age: 86 Year
  Sex: Female

DRUGS (6)
  1. ASPIRIN [Suspect]
     Active Substance: ASPIRIN
     Indication: Product used for unknown indication
     Dosage: 700 MILLIGRAM, TOTAL (100 MG: 7 TABLET)
     Route: 048
     Dates: start: 20240116, end: 20240116
  2. MIRTAZAPINE [Suspect]
     Active Substance: MIRTAZAPINE
     Indication: Product used for unknown indication
     Dosage: 210 MILLIGRAM, TOTAL (30 MG: 7 TABLET)
     Route: 048
     Dates: start: 20240116, end: 20240116
  3. LORAZEPAM [Suspect]
     Active Substance: LORAZEPAM
     Indication: Product used for unknown indication
     Dosage: 17.5 MILLIGRAM, TOTAL (2.5 MG: 7 TABLET)
     Route: 048
     Dates: start: 20240116, end: 20240116
  4. LEVOTHYROXINE SODIUM [Suspect]
     Active Substance: LEVOTHYROXINE SODIUM
     Indication: Product used for unknown indication
     Dosage: 525 MICROGRAM, TOTAL (75 MCG: 7 TABLET)
     Route: 048
     Dates: start: 20240116, end: 20240116
  5. AMLODIPINE\INDAPAMIDE\PERINDOPRIL [Suspect]
     Active Substance: AMLODIPINE\INDAPAMIDE\PERINDOPRIL
     Indication: Product used for unknown indication
     Dosage: 7 DOSAGE FORM, TOTAL (5/1.25/5 MG: 7 TABLET)
     Route: 048
     Dates: start: 20240116, end: 20240116
  6. DULOXETINE [Suspect]
     Active Substance: DULOXETINE
     Indication: Product used for unknown indication
     Dosage: 420 MILLIGRAM, TOTAL (60 MG: 7 TABLET)
     Route: 048
     Dates: start: 20240116, end: 20240116

REACTIONS (2)
  - Psychomotor skills impaired [Unknown]
  - Substance abuse [Unknown]

NARRATIVE: CASE EVENT DATE: 20240116
